FAERS Safety Report 6538616-9 (Version None)
Quarter: 2010Q1

REPORT INFORMATION
  Report Type: 
  Country: None (occurrence: None)
  Receive Date: 20100114
  Receipt Date: 20100114
  Transmission Date: 20100710
  Serious: Yes (Other)
  Sender: FDA-Public Use
  Company Number: None

PATIENT
  Sex: Female

DRUGS (2)
  1. XANAX [Suspect]
     Indication: PANIC DISORDER
     Dosage: ONCE QID
     Dates: start: 20091208
  2. XANAX [Suspect]
     Indication: PANIC DISORDER
     Dosage: ONCE QID
     Dates: start: 20100114

REACTIONS (4)
  - FEELING ABNORMAL [None]
  - HALLUCINATION [None]
  - PALPITATIONS [None]
  - SUICIDAL IDEATION [None]
